FAERS Safety Report 8410398-5 (Version None)
Quarter: 2012Q2

REPORT INFORMATION
  Report Type: 
  Country: None (occurrence: None)
  Receive Date: 20120323
  Receipt Date: 20111201
  Transmission Date: 20120825
  Serious: Yes (Hospitalization)
  Sender: FDA-Public Use
  Company Number: 163-21880-11120526

PATIENT
  Age: 55 Year
  Sex: Male
  Weight: 91 kg

DRUGS (6)
  1. REVLIMID [Suspect]
     Indication: DIFFUSE LARGE B-CELL LYMPHOMA
     Dosage: 10 MG, 1 IN 1 D, PO ; 5 MG, 1 IN 2 D, PO
     Route: 048
     Dates: start: 20101201
  2. REVLIMID [Suspect]
     Indication: PSEUDOLYMPHOMA
     Dosage: 10 MG, 1 IN 1 D, PO ; 5 MG, 1 IN 2 D, PO
     Route: 048
     Dates: start: 20101201
  3. REVLIMID [Suspect]
     Indication: DIFFUSE LARGE B-CELL LYMPHOMA
     Dosage: 10 MG, 1 IN 1 D, PO ; 5 MG, 1 IN 2 D, PO
     Route: 048
     Dates: start: 20110404
  4. REVLIMID [Suspect]
     Indication: PSEUDOLYMPHOMA
     Dosage: 10 MG, 1 IN 1 D, PO ; 5 MG, 1 IN 2 D, PO
     Route: 048
     Dates: start: 20110404
  5. NEUPOGEN [Concomitant]
  6. FLUDARABINE PHOSPHATE [Concomitant]

REACTIONS (3)
  - WHITE BLOOD CELL COUNT DECREASED [None]
  - SEPSIS [None]
  - PLATELET COUNT DECREASED [None]
